FAERS Safety Report 4500708-3 (Version None)
Quarter: 2004Q4

REPORT INFORMATION
  Report Type: 
  Country: None (occurrence: None)
  Receive Date: 20041115
  Receipt Date: 20041104
  Transmission Date: 20050328
  Serious: Yes (Hospitalization)
  Sender: FDA-Public Use
  Company Number: PHEH2004US11954

PATIENT
  Age: 50 Year
  Sex: Female
  Weight: 50 kg

DRUGS (2)
  1. ZELNORM [Suspect]
     Dosage: 6 MG, PRN
     Route: 048
     Dates: start: 20030601, end: 20041026
  2. NEXIUM [Concomitant]
     Indication: GASTROOESOPHAGEAL REFLUX DISEASE
     Dates: start: 20030101

REACTIONS (20)
  - ABDOMINAL DISTENSION [None]
  - ABDOMINAL PAIN [None]
  - ABDOMINAL TENDERNESS [None]
  - BIOPSY COLON ABNORMAL [None]
  - BOWEL SOUNDS ABNORMAL [None]
  - CARDIOMEGALY [None]
  - CHILLS [None]
  - COLD SWEAT [None]
  - COLITIS COLLAGENOUS [None]
  - COLITIS ISCHAEMIC [None]
  - COLONOSCOPY ABNORMAL [None]
  - COMPUTERISED TOMOGRAM ABDOMEN ABNORMAL [None]
  - FAECAL OCCULT BLOOD POSITIVE [None]
  - GALLBLADDER DISORDER [None]
  - HAEMATOCHEZIA [None]
  - HYPERVENTILATION [None]
  - LOSS OF CONSCIOUSNESS [None]
  - NAUSEA [None]
  - RECTAL HAEMORRHAGE [None]
  - RENAL CYST [None]
